FAERS Safety Report 5201865-6 (Version None)
Quarter: 2006Q4

REPORT INFORMATION
  Report Type: 
  Country: None (occurrence: None)
  Receive Date: 20061003
  Receipt Date: 20060525
  Transmission Date: 20070319
  Serious: Yes (Other)
  Sender: FDA-Public Use
  Company Number: 2006-0009661

PATIENT
  Sex: Male

DRUGS (9)
  1. TRUVADA [Suspect]
     Indication: HIV INFECTION
  2. D4T (STAVUDINE) [Concomitant]
  3. INVIRASE [Concomitant]
  4. REYATAZ [Concomitant]
  5. RITONAVIR (RITONAVIR) [Concomitant]
  6. INSULIN [Concomitant]
  7. ACE INHIBITOR (ACE INHIBITOR NOS) [Concomitant]
  8. LASIX [Concomitant]
  9. ALDACTONE [Concomitant]

REACTIONS (1)
  - BLOOD CREATININE INCREASED [None]
